FAERS Safety Report 5465926-9 (Version None)
Quarter: 2007Q3

REPORT INFORMATION
  Report Type: 
  Country: None (occurrence: None)
  Receive Date: 20070924
  Receipt Date: 20070910
  Transmission Date: 20080115
  Serious: Yes (Other)
  Sender: FDA-Public Use
  Company Number: CH-SHR-CH-2007-034331

PATIENT
  Age: 75 Year
  Sex: Male

DRUGS (1)
  1. REFLUDAN [Suspect]
     Dosage: UNK, UNK

REACTIONS (1)
  - THROMBOSIS IN DEVICE [None]
